FAERS Safety Report 12613829 (Version 1)
Quarter: 2016Q3

REPORT INFORMATION
  Report Type: Spontaneous
  Country: US (occurrence: None)
  Receive Date: 20160801
  Receipt Date: 20160801
  Transmission Date: 20161109
  Serious: Yes (Life-Threatening)
  Sender: FDA-Public Use
  Company Number: None

PATIENT
  Age: 49 Year
  Sex: Female
  Weight: 81.65 kg

DRUGS (5)
  1. SMZ [Suspect]
     Active Substance: SULFAMETHOXAZOLE\TRIMETHOPRIM
     Indication: EAR INFECTION
     Dosage: 10 TABLETS TWICE A DAY
     Route: 048
  2. BCOMPLEX [Concomitant]
  3. HYDROCHOROTHIA [Concomitant]
  4. BUSPIRONE [Concomitant]
     Active Substance: BUSPIRONE HYDROCHLORIDE
  5. L-TYROSINE [Concomitant]

REACTIONS (15)
  - Urinary tract infection [None]
  - Lethargy [None]
  - Fatigue [None]
  - Restlessness [None]
  - Nausea [None]
  - Depression [None]
  - Dizziness [None]
  - Musculoskeletal stiffness [None]
  - Contusion [None]
  - Pyrexia [None]
  - Headache [None]
  - Malaise [None]
  - Blood pressure increased [None]
  - Anxiety [None]
  - Nervousness [None]

NARRATIVE: CASE EVENT DATE: 20160716
